FAERS Safety Report 9913934 (Version 1)
Quarter: 2014Q1

REPORT INFORMATION
  Report Type: Spontaneous
  Country: US (occurrence: None)
  Receive Date: 20140219
  Receipt Date: 20140219
  Transmission Date: 20141002
  Serious: Yes (Life-Threatening, Disabling, Other)
  Sender: FDA-Public Use
  Company Number: None

PATIENT
  Age: 55 Year
  Sex: Female
  Weight: 74.84 kg

DRUGS (1)
  1. NICOTINE GUM 2 AND 4 MG WAL MART, COSTCO, NICORETTE [Suspect]
     Indication: SMOKING CESSATION THERAPY
     Dosage: 24    24 PIECES  TAKEN BY MOUTH
     Route: 048
     Dates: start: 20100102, end: 20140217

REACTIONS (20)
  - Weight decreased [None]
  - Hypertension [None]
  - Nausea [None]
  - Dizziness [None]
  - Motion sickness [None]
  - Vomiting [None]
  - Blepharospasm [None]
  - Anxiety [None]
  - Disturbance in attention [None]
  - Dementia [None]
  - Overdose [None]
  - Nervous system disorder [None]
  - Dizziness [None]
  - Syncope [None]
  - Meniscus injury [None]
  - Fall [None]
  - Intervertebral disc protrusion [None]
  - Nerve injury [None]
  - Headache [None]
  - Abdominal pain upper [None]
